FAERS Safety Report 4358354-0 (Version None)
Quarter: 2004Q2

REPORT INFORMATION
  Report Type: 
  Country: None (occurrence: None)
  Receive Date: 20040510
  Receipt Date: 20040429
  Transmission Date: 20050107
  Serious: Yes (Hospitalization, Disabling)
  Sender: FDA-Public Use
  Company Number: FRWYE731529APR04

PATIENT
  Age: 65 Year
  Sex: Female

DRUGS (7)
  1. EFFEXOR [Suspect]
     Indication: MAJOR DEPRESSION
     Dosage: SEE IMAGE, ORAL
     Route: 048
     Dates: start: 20020101, end: 20040201
  2. EFFEXOR [Suspect]
     Indication: MAJOR DEPRESSION
     Dosage: SEE IMAGE, ORAL
     Route: 048
     Dates: start: 20040428, end: 20040301
  3. EFFEXOR [Suspect]
     Indication: MAJOR DEPRESSION
     Dosage: SEE IMAGE, ORAL
     Route: 048
     Dates: start: 20040201, end: 20040427
  4. HALDOL [Suspect]
     Indication: MAJOR DEPRESSION
     Dosage: 150 MG 1 X PER 1 DAY, ORAL
     Route: 048
     Dates: start: 20040201, end: 20040301
  5. DITROPAN [Concomitant]
  6. ACTONEL [Concomitant]
  7. CALCIUM WITH VITAMIN D (CALCIUM/PHOSPHATE/CALCIUM LACTATE/ERGOCALCIFER [Concomitant]

REACTIONS (4)
  - DISEASE PROGRESSION [None]
  - DRUG EFFECT DECREASED [None]
  - EXTRAPYRAMIDAL DISORDER [None]
  - MAJOR DEPRESSION [None]
